FAERS Safety Report 21946309 (Version 1)
Quarter: 2023Q1

REPORT INFORMATION
  Report Type: Spontaneous
  Country: US (occurrence: None)
  Receive Date: 20230202
  Receipt Date: 20230202
  Transmission Date: 20230417
  Serious: Yes (unspecified)
  Sender: FDA-Public Use
  Company Number: None

PATIENT
  Age: 54 Year
  Sex: Female

DRUGS (12)
  1. CABENUVA [Suspect]
     Active Substance: CABOTEGRAVIR\RILPIVIRINE
     Indication: HIV infection
     Dosage: 6 ML EVERY OTHER MONTH INTRAMUSCULAR?
     Route: 030
     Dates: start: 20220729, end: 20230201
  2. ATENOLOL 100  MG [Concomitant]
  3. ATORVASTATIN [Concomitant]
     Active Substance: ATORVASTATIN
  4. LYRICA [Concomitant]
     Active Substance: PREGABALIN
  5. MONTELUKAST SODIUM [Concomitant]
     Active Substance: MONTELUKAST SODIUM
  6. NUCYNTA ER 100 MG [Concomitant]
  7. PANTOPRAZOLE SODIUM [Concomitant]
     Active Substance: PANTOPRAZOLE SODIUM
  8. SUMATRIPTAN [Concomitant]
     Active Substance: SUMATRIPTAN
  9. TIZANIDINE [Concomitant]
     Active Substance: TIZANIDINE
  10. VERAPAMIL ER 180 MG [Concomitant]
  11. VITAMIN D2 50,000 UN [Concomitant]
  12. CABENUVA [Suspect]
     Active Substance: CABOTEGRAVIR\RILPIVIRINE
     Indication: Acquired immunodeficiency syndrome

REACTIONS (1)
  - Viral load increased [None]

NARRATIVE: CASE EVENT DATE: 20230201
